FAERS Safety Report 5410270-9 (Version None)
Quarter: 2007Q3

REPORT INFORMATION
  Report Type: 
  Country: None (occurrence: None)
  Receive Date: 20070808
  Receipt Date: 20070727
  Transmission Date: 20080115
  Serious: Yes (Hospitalization)
  Sender: FDA-Public Use
  Company Number: 2007S1004441

PATIENT
  Age: 42 Year
  Sex: Female
  Weight: 88.905 kg

DRUGS (9)
  1. CLOZAPINE [Suspect]
     Indication: SCHIZOPHRENIA
     Dosage: 100 MG; TWICE A DAY; ORAL, 100 MG; AT BEDTIME; ORAL
     Route: 048
     Dates: start: 20070401, end: 20070513
  2. CLOZAPINE [Suspect]
     Indication: SCHIZOPHRENIA
     Dosage: 100 MG; TWICE A DAY; ORAL, 100 MG; AT BEDTIME; ORAL
     Route: 048
     Dates: start: 20070514, end: 20070514
  3. CLOZAPINE [Suspect]
     Indication: SCHIZOPHRENIA
     Dosage: 50 MG AT BEDTIME; ORAL, 25 MG; EVERY MORNING; ORAL
     Route: 048
     Dates: start: 20070515, end: 20070515
  4. CLOZAPINE [Suspect]
     Indication: SCHIZOPHRENIA
     Dosage: 50 MG AT BEDTIME; ORAL, 25 MG; EVERY MORNING; ORAL
     Route: 048
     Dates: start: 20070516, end: 20070516
  5. PROZAC [Concomitant]
  6. LAMICTAL [Concomitant]
  7. ZYPREXA [Concomitant]
  8. COGENTIN [Concomitant]
  9. RISPERDAL [Concomitant]

REACTIONS (3)
  - AGRANULOCYTOSIS [None]
  - LEUKOPENIA [None]
  - SINUSITIS [None]
